FAERS Safety Report 6506498-7 (Version None)
Quarter: 2009Q4

REPORT INFORMATION
  Report Type: 
  Country: None (occurrence: None)
  Receive Date: 20091221
  Receipt Date: 20091208
  Transmission Date: 20100525
  Serious: Yes (Hospitalization)
  Sender: FDA-Public Use
  Company Number: US-EISAI INC.-E3810-03362-SPO-US

PATIENT
  Sex: Male
  Weight: 84 kg

DRUGS (6)
  1. ACIPHEX [Suspect]
     Route: 048
  2. ASPIRIN [Suspect]
     Route: 048
  3. BACID [Suspect]
     Dosage: 2 TABS
     Route: 048
  4. LEVAQUIN [Suspect]
     Route: 048
  5. LIPITOR [Suspect]
     Route: 048
  6. PROMETHAZINE [Suspect]
     Indication: COUGH
     Dosage: 1 TSB EVERY 4-6 HOURS
     Route: 048

REACTIONS (5)
  - ARTHRALGIA [None]
  - FATIGUE [None]
  - MUSCULAR WEAKNESS [None]
  - NAUSEA [None]
  - PNEUMONIA [None]
